FAERS Safety Report 14818302 (Version 1)
Quarter: 2018Q2

REPORT INFORMATION
  Report Type: Spontaneous
  Country: FR (occurrence: FR)
  Receive Date: 20180427
  Receipt Date: 20180427
  Transmission Date: 20180711
  Serious: Yes (Other)
  Sender: FDA-Public Use
  Company Number: FR-MERCK KGAA-2046695

PATIENT
  Age: 37 Year
  Sex: Female

DRUGS (1)
  1. NOVOTHYROX [Suspect]
     Active Substance: LEVOTHYROXINE SODIUM
     Indication: PRODUCT USED FOR UNKNOWN INDICATION

REACTIONS (24)
  - Arthralgia [None]
  - Loss of personal independence in daily activities [None]
  - Irritability [None]
  - Palpitations [None]
  - Asphyxia [None]
  - Impaired work ability [None]
  - Respiratory disorder [None]
  - Joint injury [None]
  - Fear [None]
  - Anxiety [None]
  - Crying [None]
  - Alopecia [None]
  - Anxiety [None]
  - Red blood cell sedimentation rate increased [None]
  - Blood uric acid increased [None]
  - Vitamin D increased [None]
  - Muscle spasms [None]
  - Asthenia [None]
  - Stress [None]
  - Dyspnoea [None]
  - C-reactive protein increased [None]
  - Fatigue [None]
  - Apathy [None]
  - Social problem [None]

NARRATIVE: CASE EVENT DATE: 201704
